FAERS Safety Report 5007089-X (Version None)
Quarter: 2006Q2

REPORT INFORMATION
  Report Type: 
  Country: None (occurrence: None)
  Receive Date: 20060517
  Receipt Date: 20060505
  Transmission Date: 20061013
  Serious: Yes (Other)
  Sender: FDA-Public Use
  Company Number: 2006060630

PATIENT
  Age: 56 Year
  Sex: Female

DRUGS (10)
  1. GABAPENTIN [Suspect]
     Indication: ILL-DEFINED DISORDER
     Dosage: 1200 MG (3 IN 1 D),
     Dates: start: 20040101, end: 20060501
  2. OXYCODONE (OXYCODONE) [Concomitant]
  3. ACETAMINOPHEN [Concomitant]
  4. TEMAZEPAM [Concomitant]
  5. DIAZEPAM [Concomitant]
  6. CLONIDINE [Concomitant]
  7. PROPOXYPHENE (DEXTROPROPOXYPHENE) [Concomitant]
  8. EFFEXOR [Concomitant]
  9. METOCLOPRAMIDE [Concomitant]
  10. FENTANYL [Concomitant]

REACTIONS (10)
  - CONFUSIONAL STATE [None]
  - DRUG INEFFECTIVE [None]
  - DYSPHAGIA [None]
  - HYPERHIDROSIS [None]
  - INSOMNIA [None]
  - LOGORRHOEA [None]
  - MOVEMENT DISORDER [None]
  - NEOPLASM MALIGNANT [None]
  - ORAL INTAKE REDUCED [None]
  - SPEECH DISORDER [None]
